FAERS Safety Report 18929590 (Version 2)
Quarter: 2021Q1

REPORT INFORMATION
  Report Type: Spontaneous
  Country: US (occurrence: US)
  Receive Date: 20210223
  Receipt Date: 20210311
  Transmission Date: 20210420
  Serious: Yes (Death, Other)
  Sender: FDA-Public Use
  Company Number: US-ALLERGAN-2106992US

PATIENT
  Sex: Male

DRUGS (9)
  1. OXYCODONE AND ACETAMINOPHEN [Suspect]
     Active Substance: ACETAMINOPHEN\OXYCODONE HYDROCHLORIDE
     Indication: PAIN MANAGEMENT
  2. FENTANYL. [Suspect]
     Active Substance: FENTANYL
     Indication: PAIN MANAGEMENT
  3. OXYCODONE [Suspect]
     Active Substance: OXYCODONE
     Indication: PAIN MANAGEMENT
  4. NEURONTIN [Suspect]
     Active Substance: GABAPENTIN
     Indication: PAIN MANAGEMENT
  5. CLONAZEPAM. [Suspect]
     Active Substance: CLONAZEPAM
     Indication: PAIN MANAGEMENT
  6. SOMA [Suspect]
     Active Substance: CARISOPRODOL
     Indication: PAIN MANAGEMENT
  7. OXYCONTIN [Suspect]
     Active Substance: OXYCODONE HYDROCHLORIDE
     Indication: PAIN MANAGEMENT
  8. NORCO [Suspect]
     Active Substance: ACETAMINOPHEN\HYDROCODONE BITARTRATE
     Indication: PAIN MANAGEMENT
  9. OXYCODONE [Suspect]
     Active Substance: OXYCODONE
     Indication: PAIN MANAGEMENT

REACTIONS (2)
  - Cardiomegaly [Unknown]
  - Respiratory arrest [Fatal]
